FAERS Safety Report 17876748 (Version 3)
Quarter: 2020Q2

REPORT INFORMATION
  Report Type: Spontaneous
  Country: US (occurrence: US)
  Receive Date: 20200609
  Receipt Date: 20200625
  Transmission Date: 20200714
  Serious: No
  Sender: FDA-Public Use
  Company Number: US-SA-2020SA143661

PATIENT

DRUGS (1)
  1. CABLIVI [Suspect]
     Active Substance: CAPLACIZUMAB-YHDP
     Indication: THROMBOTIC MICROANGIOPATHY
     Dosage: 11 MG, QD
     Route: 058
     Dates: start: 20200520

REACTIONS (10)
  - Blood lactate dehydrogenase increased [Unknown]
  - Candida infection [Unknown]
  - Haemoglobin abnormal [Recovering/Resolving]
  - Skin discolouration [Unknown]
  - Gingival bleeding [Unknown]
  - Product physical issue [Unknown]
  - Product quality issue [Unknown]
  - Abdominal pain upper [Unknown]
  - Product dose omission [Unknown]
  - Noninfective gingivitis [Unknown]

NARRATIVE: CASE EVENT DATE: 20200529
